FAERS Safety Report 5495189-X (Version None)
Quarter: 2007Q4

REPORT INFORMATION
  Report Type: 
  Country: None (occurrence: None)
  Receive Date: 20071024
  Receipt Date: 20070919
  Transmission Date: 20080405
  Serious: No
  Sender: FDA-Public Use
  Company Number: US-AMGEN-US244093

PATIENT
  Sex: Female

DRUGS (2)
  1. VECTIBIX [Suspect]
     Indication: COLORECTAL CANCER
  2. FLAGYL [Concomitant]

REACTIONS (1)
  - URTICARIA [None]
